FAERS Safety Report 24997756 (Version 1)
Quarter: 2025Q1

REPORT INFORMATION
  Report Type: Spontaneous
  Country: FR (occurrence: FR)
  Receive Date: 20250222
  Receipt Date: 20250222
  Transmission Date: 20250409
  Serious: Yes (Hospitalization, Other)
  Sender: AUROBINDO
  Company Number: FR-AFSSAPS-CN2025000012

PATIENT
  Age: 89 Year
  Sex: Female
  Weight: 52 kg

DRUGS (18)
  1. METRONIDAZOLE [Suspect]
     Active Substance: METRONIDAZOLE
     Indication: Klebsiella bacteraemia
     Dosage: 500 MILLIGRAM, 3 TIMES A DAY [1-1-1]
     Route: 048
     Dates: start: 20241117, end: 20241118
  2. CIPROFLOXACIN HYDROCHLORIDE [Suspect]
     Active Substance: CIPROFLOXACIN HYDROCHLORIDE
     Indication: Bacterial pyelonephritis
     Dosage: 1 GRAM, ONCE A DAY [1-0-0]
     Route: 048
     Dates: start: 20241119, end: 20241124
  3. ATENOLOL [Suspect]
     Active Substance: ATENOLOL
     Indication: Atrial fibrillation
     Dosage: 50 MILLIGRAM, ONCE A DAY [1-0-0]
     Route: 048
     Dates: start: 20241117
  4. FUROSEMIDE [Suspect]
     Active Substance: FUROSEMIDE
     Indication: Cardiac failure
     Route: 042
     Dates: start: 20241117, end: 20241117
  5. FUROSEMIDE [Suspect]
     Active Substance: FUROSEMIDE
     Dosage: 80 MILLIGRAM, ONCE A DAY [80MG SUR 24H IVSER]
     Route: 042
     Dates: start: 20241117, end: 20241120
  6. FUROSEMIDE [Suspect]
     Active Substance: FUROSEMIDE
     Dosage: 60 MILLIGRAM, ONCE A DAY [40-20-0MG]
     Route: 048
     Dates: start: 20241120
  7. METHOTREXATE [Suspect]
     Active Substance: METHOTREXATE
     Indication: Rheumatoid arthritis
     Dosage: 10 MILLIGRAM, EVERY WEEK
     Route: 058
     Dates: start: 2010, end: 202407
  8. METHOTREXATE [Suspect]
     Active Substance: METHOTREXATE
     Dosage: 7.5 MILLIGRAM, EVERY WEEK
     Route: 058
     Dates: start: 202407, end: 20241115
  9. METHOTREXATE [Suspect]
     Active Substance: METHOTREXATE
     Dosage: 10 MILLIGRAM, EVERY WEEK
     Route: 058
     Dates: start: 20241205, end: 20241231
  10. CEFTRIAXONE [Suspect]
     Active Substance: CEFTRIAXONE
     Indication: Klebsiella bacteraemia
     Dosage: 1 GRAM, ONCE A DAY
     Route: 042
     Dates: start: 20241116, end: 20241119
  11. ELIQUIS [Suspect]
     Active Substance: APIXABAN
     Indication: Atrial fibrillation
     Dosage: 2.5 MILLIGRAM, TWO TIMES A DAY [1-0-1]
     Route: 048
     Dates: start: 20241117
  12. PREDNISONE [Concomitant]
     Active Substance: PREDNISONE
     Indication: Rheumatoid arthritis
     Dosage: 5 MILLIGRAM, ONCE A DAY [1-0-0]
     Route: 048
  13. LOSARTAN POTASSIUM [Concomitant]
     Active Substance: LOSARTAN POTASSIUM
     Indication: Hypertension
     Dosage: 100 MILLIGRAM, ONCE A DAY [1-0-0]
     Route: 048
  14. LOSARTAN POTASSIUM [Concomitant]
     Active Substance: LOSARTAN POTASSIUM
     Indication: Nephroprotective therapy
  15. ESOMEPRAZOLE [Concomitant]
     Active Substance: ESOMEPRAZOLE
     Indication: Product used for unknown indication
     Dosage: 20 MILLIGRAM, ONCE A DAY [0-0-1]
     Route: 048
  16. FOLIC ACID [Concomitant]
     Active Substance: FOLIC ACID
     Indication: Anaemia folate deficiency
     Dosage: 5 MILLIGRAM, EVERY WEEK
     Route: 048
     Dates: end: 20241202
  17. FOLIC ACID [Concomitant]
     Active Substance: FOLIC ACID
     Indication: Prophylaxis
     Dosage: 5 MILLIGRAM, ONCE A DAY [1-0-0]
     Route: 048
     Dates: start: 20241202
  18. MIANSERIN HYDROCHLORIDE [Concomitant]
     Active Substance: MIANSERIN HYDROCHLORIDE
     Indication: Product used for unknown indication
     Dosage: 10 MILLIGRAM, ONCE A DAY [0-0-1]
     Route: 048
     Dates: start: 202306

REACTIONS (1)
  - Pancytopenia [Recovered/Resolved]

NARRATIVE: CASE EVENT DATE: 20241230
